FAERS Safety Report 13333744 (Version 1)
Quarter: 2017Q1

REPORT INFORMATION
  Report Type: Spontaneous
  Country: GB (occurrence: GB)
  Receive Date: 20170314
  Receipt Date: 20170314
  Transmission Date: 20170428
  Serious: Yes (Other)
  Sender: FDA-Public Use
  Company Number: GB-TEVA-748212ACC

PATIENT
  Age: 60 Year
  Sex: Female
  Weight: 82.55 kg

DRUGS (6)
  1. PARACETAMOL [Concomitant]
     Active Substance: ACETAMINOPHEN
  2. CITALOPRAM [Suspect]
     Active Substance: CITALOPRAM HYDROBROMIDE
     Indication: ANTIDEPRESSANT THERAPY
     Route: 048
     Dates: start: 20170212
  3. DOXAZOSINE [Concomitant]
     Active Substance: DOXAZOSIN MESYLATE
  4. VENLALIC XL [Concomitant]
     Active Substance: VENLAFAXINE HYDROCHLORIDE
  5. BENDROFLUMETHIAZIDE [Concomitant]
     Active Substance: BENDROFLUMETHIAZIDE
  6. OMEPRAZOL [Concomitant]
     Active Substance: OMEPRAZOLE

REACTIONS (12)
  - Nasal congestion [Recovering/Resolving]
  - Asthenia [Recovering/Resolving]
  - Mydriasis [Recovered/Resolved]
  - Malaise [Recovering/Resolving]
  - Disturbance in attention [Not Recovered/Not Resolved]
  - Abnormal dreams [Not Recovered/Not Resolved]
  - Somnolence [Recovering/Resolving]
  - Peripheral swelling [Recovered/Resolved]
  - Insomnia [Recovering/Resolving]
  - Decreased appetite [Not Recovered/Not Resolved]
  - Hyperhidrosis [Not Recovered/Not Resolved]
  - Mental fatigue [Not Recovered/Not Resolved]

NARRATIVE: CASE EVENT DATE: 20170212
